FAERS Safety Report 8802726 (Version 2)
Quarter: 2013Q1

REPORT INFORMATION
  Report Type: Spontaneous
  Country: US (occurrence: US)
  Receive Date: 20120921
  Receipt Date: 20130206
  Transmission Date: 20140127
  Serious: Yes (Hospitalization, Disabling, Other)
  Sender: FDA-Public Use
  Company Number: US-009507513-1203USA03381

PATIENT
  Sex: Female
  Weight: 64.4 kg

DRUGS (3)
  1. FOSAMAX [Suspect]
     Indication: OSTEOPENIA
     Dosage: 70 MG, UNK
     Route: 048
     Dates: start: 200201, end: 2006
  2. ACTONEL [Suspect]
     Indication: OSTEOPENIA
     Dosage: 35 MG, QM
     Route: 048
     Dates: start: 20060803, end: 201004
  3. VITAMINS (UNSPECIFIED) [Concomitant]
     Dosage: 1200 MG, QD
     Dates: start: 2000

REACTIONS (34)
  - Open reduction of fracture [Unknown]
  - Open reduction of fracture [Unknown]
  - Osteoporosis [Unknown]
  - Adenoidectomy [Unknown]
  - Femur fracture [Unknown]
  - Bone density decreased [Unknown]
  - Femur fracture [Unknown]
  - Femur fracture [Unknown]
  - Foot fracture [Unknown]
  - Hypertension [Unknown]
  - Blood cholesterol increased [Unknown]
  - Hot flush [Unknown]
  - Blood pressure increased [Unknown]
  - Essential tremor [Unknown]
  - Stress urinary incontinence [Unknown]
  - Cystocele [Unknown]
  - Rectocele [Unknown]
  - Acquired oesophageal web [Unknown]
  - Helicobacter gastritis [Unknown]
  - Fall [Unknown]
  - Pulmonary mass [Unknown]
  - Aortic aneurysm [Unknown]
  - Chest pain [Unknown]
  - Sinus disorder [Unknown]
  - Coronary artery disease [Unknown]
  - Macular degeneration [Unknown]
  - Glaucoma [Unknown]
  - Intermittent claudication [Unknown]
  - Peripheral vascular disorder [Unknown]
  - Limb injury [Unknown]
  - Metatarsalgia [Unknown]
  - Gastrooesophageal reflux disease [Unknown]
  - Hypotension [Recovered/Resolved]
  - Anaemia postoperative [Recovered/Resolved]
